FAERS Safety Report 6408096-2 (Version None)
Quarter: 2009Q4

REPORT INFORMATION
  Report Type: 
  Country: None (occurrence: None)
  Receive Date: 20091021
  Receipt Date: 20091015
  Transmission Date: 20100525
  Serious: Yes (Other)
  Sender: FDA-Public Use
  Company Number: GB-ALLERGAN-0913379US

PATIENT
  Age: 47 Year
  Sex: Male
  Weight: 70 kg

DRUGS (3)
  1. LUMIGAN [Suspect]
     Indication: GLAUCOMA
     Dosage: 1 GTT, QPM
     Route: 047
     Dates: start: 20081030
  2. COMBIGAN [Concomitant]
     Indication: GLAUCOMA
     Dosage: UNK
     Route: 047
     Dates: start: 20081128
  3. AZOPT [Concomitant]
     Indication: GLAUCOMA
     Dosage: UNK
     Route: 047
     Dates: start: 20090121

REACTIONS (1)
  - RETINAL VEIN OCCLUSION [None]
